FAERS Safety Report 8615587-2 (Version None)
Quarter: 2012Q3

REPORT INFORMATION
  Report Type: 
  Country: None (occurrence: None)
  Receive Date: 20120823
  Receipt Date: 20120815
  Transmission Date: 20120928
  Serious: Yes (Hospitalization)
  Sender: FDA-Public Use
  Company Number: US-BAYER-2011-011283

PATIENT
  Age: 46 Year
  Sex: Female

DRUGS (22)
  1. IBUPROFEN [Concomitant]
     Indication: PAIN
     Dosage: 600 MG, TID
     Route: 048
  2. PATANOL [Concomitant]
     Indication: MULTIPLE ALLERGIES
     Dosage: 2 GTT, BID
     Route: 047
  3. TORADOL [Concomitant]
     Indication: MIGRAINE
     Dosage: UNK
     Route: 048
     Dates: start: 20080130
  4. VENTOLIN [Concomitant]
  5. AMERGE [Concomitant]
     Indication: MIGRAINE
     Dosage: 2.5 MG, QD
     Route: 048
  6. CLONAZEPAM [Concomitant]
     Indication: RESTLESS LEGS SYNDROME
     Dosage: 0.5 MG, PRN
     Route: 048
     Dates: start: 20080110, end: 20080201
  7. DOXYCYCLINE HCL [Concomitant]
     Indication: ACNE
     Dosage: 100 MG, BID
     Route: 048
     Dates: start: 20080110, end: 20080201
  8. NASONEX [Concomitant]
  9. FEXOFENADINE [Concomitant]
     Dosage: UNK
     Dates: start: 20080201
  10. CLARITIN-D [Concomitant]
  11. DIFFERIN [Concomitant]
     Indication: ACNE
     Dosage: UNK
     Dates: start: 20080110, end: 20080201
  12. DROPERIDOL [Concomitant]
     Indication: MIGRAINE
     Dosage: UNK
     Route: 048
     Dates: start: 20080130
  13. BENADRYL [Concomitant]
     Indication: MIGRAINE
     Dosage: UNK
     Route: 048
     Dates: start: 20080130
  14. YAZ [Suspect]
     Indication: PREMENSTRUAL SYNDROME
     Dosage: UNK
     Route: 048
     Dates: start: 20071201, end: 20080301
  15. DROSPIRENONE AND ETHINYL ESTRADIOL [Suspect]
     Dosage: UNK
     Route: 048
     Dates: start: 20080801, end: 20090203
  16. TETRACYCLINE [Concomitant]
     Indication: ACNE
     Dosage: UNK
     Route: 048
     Dates: start: 20080110, end: 20080201
  17. TETRACYCLINE [Concomitant]
     Dosage: UNK
     Route: 048
     Dates: start: 20090113, end: 20090203
  18. CELEBREX [Concomitant]
     Dosage: 200 MG, BID
     Route: 048
  19. CLONAZEPAM [Concomitant]
     Dosage: 0.5 MG, PRN
     Route: 048
     Dates: start: 20090113, end: 20090203
  20. SINGULAIR [Concomitant]
  21. YASMIN [Suspect]
     Dosage: UNK
     Route: 048
     Dates: start: 20080401, end: 20080801
  22. METOCLOPRAMIDE [Concomitant]
     Route: 048

REACTIONS (6)
  - PULMONARY EMBOLISM [None]
  - CONVULSION [None]
  - HEADACHE [None]
  - PAIN [None]
  - DYSPNOEA [None]
  - CHEST PAIN [None]
